FAERS Safety Report 6520814-1 (Version None)
Quarter: 2009Q4

REPORT INFORMATION
  Report Type: 
  Country: None (occurrence: None)
  Receive Date: 20091229
  Receipt Date: 20091219
  Transmission Date: 20100525
  Serious: Yes (Death, Other)
  Sender: FDA-Public Use
  Company Number: EG-SANOFI-AVENTIS-2009SA011044

PATIENT
  Age: 73 Year
  Sex: Female

DRUGS (1)
  1. LANTUS [Suspect]
     Indication: TYPE 2 DIABETES MELLITUS
     Route: 058
     Dates: start: 20090712, end: 20091101

REACTIONS (1)
  - CEREBRAL INFARCTION [None]
